FAERS Safety Report 22137346 (Version 1)
Quarter: 2023Q1

REPORT INFORMATION
  Report Type: Spontaneous
  Country: CA (occurrence: CA)
  Receive Date: 20230325
  Receipt Date: 20230325
  Transmission Date: 20230418
  Serious: Yes (Other)
  Sender: FDA-Public Use
  Company Number: None

PATIENT
  Sex: Female

DRUGS (5)
  1. PACLITAXEL [Suspect]
     Active Substance: PACLITAXEL
     Indication: Endometrial cancer
     Dosage: SOLUTION INTRAVENOUS, FREQUENCY: ONCE
     Route: 042
  2. CISPLATIN [Concomitant]
     Active Substance: CISPLATIN
     Dosage: SOLUTION INTRAVENOUS
     Route: 042
  3. DOCUSATE SODIUM [Concomitant]
     Active Substance: DOCUSATE SODIUM
  4. LORAZEPAM [Concomitant]
     Active Substance: LORAZEPAM
     Route: 065
  5. MAGNESIUM [Concomitant]
     Active Substance: MAGNESIUM

REACTIONS (2)
  - Paraesthesia [Recovered/Resolved]
  - Paraesthesia oral [Recovered/Resolved]
